FAERS Safety Report 13853710 (Version 3)
Quarter: 2018Q1

REPORT INFORMATION
  Report Type: Spontaneous
  Country: US (occurrence: US)
  Receive Date: 20170810
  Receipt Date: 20180222
  Transmission Date: 20180508
  Serious: No
  Sender: FDA-Public Use
  Company Number: US-LUNDBECK-DKLU2035017

PATIENT
  Sex: Male

DRUGS (1)
  1. NORTHERA [Suspect]
     Active Substance: DROXIDOPA
     Indication: PRODUCT USED FOR UNKNOWN INDICATION
     Dosage: SCHEDULE C FIXED DOSE
     Route: 048
     Dates: start: 20170714

REACTIONS (7)
  - Blood pressure ambulatory decreased [Unknown]
  - Somnolence [Unknown]
  - Blood pressure decreased [Unknown]
  - Drug effect delayed [Unknown]
  - Therapeutic response decreased [Unknown]
  - Feeling drunk [Unknown]
  - Drug dose omission [Unknown]
